FAERS Safety Report 9481382 (Version 1)
Quarter: 2013Q3

REPORT INFORMATION
  Report Type: Spontaneous
  Country: GB (occurrence: GB)
  Receive Date: 20130828
  Receipt Date: 20130828
  Transmission Date: 20140515
  Serious: Yes (Other)
  Sender: FDA-Public Use
  Company Number: GB-MERCK-1308GBR011281

PATIENT
  Age: 47 Year
  Sex: Female
  Weight: 119 kg

DRUGS (3)
  1. SITAGLIPTIN PHOSPHATE [Suspect]
     Indication: DIABETES MELLITUS
     Dosage: 1 DF, QD
     Route: 048
     Dates: start: 20120201, end: 20130807
  2. LOSARTAN POTASSIUM 12,5 MG [Concomitant]
  3. SIMVASTATIN [Concomitant]

REACTIONS (8)
  - Dysphonia [Not Recovered/Not Resolved]
  - Cluster headache [Recovered/Resolved]
  - Pain in extremity [Recovered/Resolved]
  - Rhinorrhoea [Recovering/Resolving]
  - Oropharyngeal pain [Recovered/Resolved with Sequelae]
  - Upper respiratory tract infection [Recovering/Resolving]
  - Pain in extremity [Recovered/Resolved with Sequelae]
  - Constipation [Recovered/Resolved]
